FAERS Safety Report 12616896 (Version 2)
Quarter: 2021Q2

REPORT INFORMATION
  Report Type: Spontaneous
  Country: US (occurrence: US)
  Receive Date: 20160802
  Receipt Date: 20210529
  Transmission Date: 20210716
  Serious: Yes (Death, Hospitalization, Other)
  Sender: FDA-Public Use
  Company Number: US-JNJFOC-20160719481

PATIENT
  Age: 35 Year
  Sex: Female
  Weight: 63.5 kg

DRUGS (2)
  1. ALCOHOL. [Suspect]
     Active Substance: ALCOHOL
     Indication: PRODUCT USED FOR UNKNOWN INDICATION
     Dosage: 80 G
     Route: 048
  2. TYLENOL [Suspect]
     Active Substance: ACETAMINOPHEN
     Indication: PRODUCT USED FOR UNKNOWN INDICATION
     Dosage: SINGLE DOSE OF 1200 MG
     Route: 048

REACTIONS (8)
  - Overdose [Fatal]
  - Acute kidney injury [Unknown]
  - Product administration error [Fatal]
  - Brain death [Fatal]
  - Completed suicide [Fatal]
  - Acute hepatic failure [Fatal]
  - Brain oedema [Fatal]
  - Arrhythmia [Unknown]

NARRATIVE: CASE EVENT DATE: 20020308
